FAERS Safety Report 6190021-3 (Version None)
Quarter: 2009Q2

REPORT INFORMATION
  Report Type: 
  Country: None (occurrence: None)
  Receive Date: 20090514
  Receipt Date: 20090513
  Transmission Date: 20091009
  Serious: Yes (Hospitalization)
  Sender: FDA-Public Use
  Company Number: NL-BAYER-200920605GPV

PATIENT
  Age: 52 Year
  Sex: Female
  Weight: 64 kg

DRUGS (5)
  1. NEXAVAR [Suspect]
     Indication: RENAL CANCER METASTATIC
     Dosage: TOTAL DAILY DOSE: 800 MG
     Route: 048
     Dates: start: 20090325, end: 20090402
  2. PARACETAMOL [Concomitant]
     Indication: DRUG USE FOR UNKNOWN INDICATION
     Dosage: UNIT DOSE: 500 MG
     Route: 048
  3. RANITIDINE [Concomitant]
     Indication: DRUG USE FOR UNKNOWN INDICATION
     Dosage: UNIT DOSE: 150 MG
     Dates: start: 20090101
  4. THYRAX [Concomitant]
     Indication: DRUG USE FOR UNKNOWN INDICATION
     Dosage: TOTAL DAILY DOSE: 0.1 MG  UNIT DOSE: 0.1 MG
     Route: 048
     Dates: start: 20081125
  5. PAMIDRONATE DISODIUM [Concomitant]
     Indication: DRUG USE FOR UNKNOWN INDICATION
     Dosage: TOTAL DAILY DOSE: 90 MG
     Route: 042
     Dates: start: 20090305

REACTIONS (4)
  - CAPILLARY LEAK SYNDROME [None]
  - DIARRHOEA [None]
  - PYREXIA [None]
  - TOXIC SKIN ERUPTION [None]
